FAERS Safety Report 8643138 (Version 3)
Quarter: 2013Q2

REPORT INFORMATION
  Report Type: Spontaneous
  Country: US (occurrence: US)
  Receive Date: 20120629
  Receipt Date: 20130429
  Transmission Date: 20140414
  Serious: Yes (Congenital Anomaly)
  Sender: FDA-Public Use
  Company Number: US-PFIZER INC-2012153788

PATIENT
  Sex: Male

DRUGS (9)
  1. ZOLOFT [Suspect]
     Dosage: UNK
     Route: 064
     Dates: start: 2005, end: 2010
  2. IBUPROFEN [Concomitant]
     Dosage: 600 MG, UNK
     Route: 064
     Dates: start: 20100304
  3. PROCHLORPERAZINE [Concomitant]
     Dosage: 10 MG, UNK
     Route: 064
     Dates: start: 20100304
  4. OXYCODONE AP-AP [Concomitant]
     Dosage: 5-325 MG UNK
     Route: 064
     Dates: start: 20100304
  5. SERTRALINE [Concomitant]
     Dosage: 25 MG, UNK
     Route: 064
     Dates: start: 20100402
  6. NYSTATIN [Concomitant]
     Dosage: 100000 U/GM
     Route: 064
     Dates: start: 20100409
  7. LIDODERM [Concomitant]
     Dosage: 5 %, PATCH END
     Route: 064
     Dates: start: 20100409
  8. LYRICA [Concomitant]
     Dosage: 75 MG, UNK
     Route: 064
     Dates: start: 201004
  9. ETODOLAC [Concomitant]
     Dosage: 500 MG, UNK
     Route: 064
     Dates: start: 201004

REACTIONS (2)
  - Maternal exposure timing unspecified [Not Recovered/Not Resolved]
  - Scaphocephaly [Not Recovered/Not Resolved]
